FAERS Safety Report 25498728 (Version 1)
Quarter: 2025Q3

REPORT INFORMATION
  Report Type: Report from Study
  Country: US (occurrence: US)
  Receive Date: 20250701
  Receipt Date: 20250701
  Transmission Date: 20251020
  Serious: Yes (Other)
  Sender: AUROBINDO
  Company Number: US-MLMSERVICE-20250604-PI533311-00327-1

PATIENT
  Sex: Female

DRUGS (3)
  1. LURASIDONE [Suspect]
     Active Substance: LURASIDONE
     Indication: Schizophrenia
     Dosage: 160 MILLIGRAM, ONCE A DAY
     Route: 065
  2. OLANZAPINE [Suspect]
     Active Substance: OLANZAPINE
     Indication: Schizophrenia
     Dosage: 20 MILLIGRAM, ONCE A DAY (NIGHTLY)
     Route: 065
  3. DIVALPROEX SODIUM [Suspect]
     Active Substance: DIVALPROEX SODIUM
     Indication: Schizophrenia
     Dosage: 250 MILLIGRAM, ONCE A DAY
     Route: 065

REACTIONS (3)
  - Sedation [Unknown]
  - Metabolic disorder [Unknown]
  - Cardiac disorder [Unknown]
